FAERS Safety Report 9374801 (Version 2)
Quarter: 2013Q3

REPORT INFORMATION
  Report Type: Spontaneous
  Country: HK (occurrence: HK)
  Receive Date: 20130628
  Receipt Date: 20130711
  Transmission Date: 20140515
  Serious: Yes (Life-Threatening, Hospitalization)
  Sender: FDA-Public Use
  Company Number: HK-PFIZER INC-2013192017

PATIENT
  Age: 53 Year
  Sex: Male

DRUGS (27)
  1. AMIODARONE HCL [Suspect]
     Indication: ATRIAL FLUTTER
     Dosage: 200 MG, 3X/DAY (ON DAYS 11-14)
     Route: 048
  2. AMIODARONE HCL [Interacting]
     Dosage: 200 MG, 2X/DAY (ON DAYS 15-17)
     Route: 048
  3. AMIODARONE HCL [Interacting]
     Dosage: 100 MG, DAILY (FROM DAY 18)
     Route: 065
  4. PIPERACILLIN/TAZOBACTAM [Interacting]
     Indication: PNEUMONIA
     Dosage: UNK ON DAYS 3-8
     Route: 065
  5. CEFEPIME HYDROCHLORIDE [Interacting]
     Indication: PNEUMONIA
     Dosage: UNK
     Route: 065
  6. CIPROFLOXACIN [Interacting]
     Dosage: UNK
     Route: 065
  7. AMIODARONE HYDROCHLORIDE [Interacting]
     Indication: ATRIAL FLUTTER
     Dosage: 300 MG ON DAY 3
     Route: 042
  8. AMIODARONE HYDROCHLORIDE [Interacting]
     Dosage: 150 MG ON DAY 5
     Route: 042
  9. AMIODARONE HYDROCHLORIDE [Interacting]
     Dosage: 150 MG ON DAY 10
     Route: 042
  10. WARFARIN SODIUM [Interacting]
     Indication: PULMONARY EMBOLISM
     Dosage: 5 MG BOLUS ON DAYS 13-14
     Route: 065
  11. WARFARIN SODIUM [Interacting]
     Dosage: 2MG DAILY ON DAYS 15-16
     Route: 065
  12. ENOXAPARIN SODIUM [Interacting]
     Indication: PULMONARY EMBOLISM
     Dosage: 80 MG, UNK (ON DAYS 13-17), STOPPED AFTER THE MORNING DOSE ON DAY 17
     Route: 065
  13. DOLOGESIC [Interacting]
     Indication: PAIN
     Dosage: [DEXTROPROPOXYPHENE 32.5 MG]/ [PARACETAMOL 325 MG] (1 TABLET), 4X/DAY
     Route: 065
  14. METHYL SALICYLATE [Interacting]
     Indication: PAIN IN EXTREMITY
     Dosage: UNK
     Route: 061
  15. SALBUTAMOL [Concomitant]
     Dosage: UNK
  16. IPRATROPIUM [Concomitant]
     Dosage: UNK
  17. BUDESONIDE [Concomitant]
     Dosage: UNK
  18. HYDROCORTISONE [Concomitant]
     Dosage: UNK
  19. PREDNISOLONE [Concomitant]
     Dosage: UNK
  20. FUROSEMIDE [Concomitant]
     Dosage: UNK
  21. ESOMEPRAZOLE [Concomitant]
     Dosage: UNK
  22. PEPCIDIN [Concomitant]
     Dosage: UNK
  23. HALOPERIDOL [Concomitant]
     Dosage: UNK
  24. LACTULOSE [Concomitant]
     Dosage: UNK
  25. POTASSIUM CHLORIDE [Concomitant]
     Dosage: UNK
  26. FRAXIPARINE [Concomitant]
     Dosage: UNK
  27. HEPARIN [Concomitant]
     Dosage: UNK
     Route: 042

REACTIONS (11)
  - Drug interaction [Recovering/Resolving]
  - Retroperitoneal haematoma [Recovering/Resolving]
  - Muscle haemorrhage [Recovering/Resolving]
  - Haemoglobin decreased [Recovering/Resolving]
  - Coagulopathy [Recovering/Resolving]
  - Respiratory failure [None]
  - Chronic obstructive pulmonary disease [None]
  - Pain in extremity [None]
  - Mass [None]
  - International normalised ratio decreased [None]
  - Haemoglobin decreased [None]
